FAERS Safety Report 7427540-5 (Version None)
Quarter: 2011Q2

REPORT INFORMATION
  Report Type: 
  Country: None (occurrence: None)
  Receive Date: 20110420
  Receipt Date: 20110415
  Transmission Date: 20111010
  Serious: Yes (Life-Threatening)
  Sender: FDA-Public Use
  Company Number: GB-MERCK-1104GBR00084

PATIENT
  Age: 71 Year
  Sex: Female
  Weight: 64 kg

DRUGS (8)
  1. SIMVASTATIN [Concomitant]
     Route: 048
  2. GLICLAZIDE [Concomitant]
     Route: 065
  3. TRIMETHOPRIM [Concomitant]
     Route: 065
  4. LISINOPRIL [Concomitant]
     Route: 048
  5. TINZAPARIN SODIUM [Concomitant]
     Route: 065
  6. JANUVIA [Suspect]
     Indication: BODY MASS INDEX INCREASED
     Route: 048
     Dates: start: 20110325, end: 20110331
  7. METFORMIN [Concomitant]
     Route: 065
  8. OMEPRAZOLE [Concomitant]
     Route: 065

REACTIONS (2)
  - THROMBOCYTOPENIA [None]
  - SEPSIS [None]
